FAERS Safety Report 7875468-9 (Version None)
Quarter: 2011Q4

REPORT INFORMATION
  Report Type: 
  Country: None (occurrence: None)
  Receive Date: 20111031
  Receipt Date: 20111024
  Transmission Date: 20120403
  Serious: No
  Sender: FDA-Public Use
  Company Number: PHHY2010US41696

PATIENT
  Sex: Male
  Weight: 117.9 kg

DRUGS (12)
  1. TOPROL-XL [Concomitant]
     Dosage: UNK
  2. TASIGNA [Suspect]
     Indication: MYELOID LEUKAEMIA
     Dosage: 400 MG, Q12H
     Route: 048
     Dates: start: 20090412
  3. MULTI-VITAMIN [Concomitant]
     Indication: SUPPLEMENTATION THERAPY
     Dosage: UNK
  4. WARFARIN SODIUM [Concomitant]
     Dosage: UNK
  5. KLOR-CON [Concomitant]
     Indication: BLOOD POTASSIUM DECREASED
     Dosage: UNK
  6. TASIGNA [Suspect]
     Dosage: 400 MG, EOD
     Dates: start: 20091201
  7. DIOVAN [Concomitant]
     Dosage: UNK
  8. LASIX [Concomitant]
     Indication: OEDEMA PERIPHERAL
     Dosage: UNK
  9. ASPIRIN [Concomitant]
     Dosage: UNK
  10. ALLOPURINOL [Concomitant]
     Dosage: UNK
  11. ALDACTONE [Concomitant]
     Dosage: UNK
  12. TASIGNA [Suspect]
     Dosage: 200 MG, Q12H
     Route: 048

REACTIONS (3)
  - ANAEMIA [None]
  - DYSPNOEA [None]
  - THROMBOCYTOPENIA [None]
